FAERS Safety Report 16981988 (Version 1)
Quarter: 2019Q4

REPORT INFORMATION
  Report Type: Spontaneous
  Country: US (occurrence: US)
  Receive Date: 20191101
  Receipt Date: 20191101
  Transmission Date: 20200122
  Serious: No
  Sender: FDA-Public Use
  Company Number: US-AJANTA PHARMA USA INC.-2076316

PATIENT
  Sex: Male
  Weight: 111.36 kg

DRUGS (1)
  1. DULOXETINE (ANDA 208706) [Suspect]
     Active Substance: DULOXETINE
     Indication: MUSCULOSKELETAL PAIN
     Route: 048
     Dates: start: 201904, end: 20190728

REACTIONS (6)
  - Lethargy [Recovered/Resolved]
  - Product substitution issue [Recovered/Resolved]
  - Mood altered [Recovered/Resolved]
  - Drug ineffective [Recovered/Resolved]
  - Feeling abnormal [Recovered/Resolved]
  - Thinking abnormal [Recovered/Resolved]

NARRATIVE: CASE EVENT DATE: 2019
